FAERS Safety Report 6905846-3 (Version None)
Quarter: 2010Q3

REPORT INFORMATION
  Report Type: 
  Country: None (occurrence: None)
  Receive Date: 20100802
  Receipt Date: 20100802
  Transmission Date: 20110219
  Serious: No
  Sender: FDA-Public Use
  Company Number: None

PATIENT
  Age: 79 Year
  Sex: Female
  Weight: 55.3388 kg

DRUGS (1)
  1. CIPROFLOXACIN HCL [Suspect]
     Indication: CYSTITIS
     Dosage: 2 TIMES DAILY
     Dates: start: 20100716, end: 20100719

REACTIONS (3)
  - ABDOMINAL DISCOMFORT [None]
  - PRURITUS GENERALISED [None]
  - ULCER [None]
